FAERS Safety Report 5657753-4 (Version None)
Quarter: 2008Q1

REPORT INFORMATION
  Report Type: 
  Country: None (occurrence: None)
  Receive Date: 20080305
  Receipt Date: 20080218
  Transmission Date: 20080703
  Serious: Yes (Other)
  Sender: FDA-Public Use
  Company Number: MK-6033796

PATIENT
  Sex: Male
  Weight: 91 kg

DRUGS (8)
  1. OMEPRAZOLE [Suspect]
     Indication: HIATUS HERNIA
     Dosage: 20 MG; DAILY; ORAL
     Route: 048
     Dates: start: 20050324
  2. AMITRIPTYLINE HCL [Concomitant]
  3. ASPIRIN [Concomitant]
  4. CORO-NITRO [Concomitant]
  5. IKOREL [Concomitant]
  6. LIPITOR [Concomitant]
  7. SLOZEM [Concomitant]
  8. TAMSULOSIN HCL [Concomitant]

REACTIONS (4)
  - AXILLARY PAIN [None]
  - BREAST PAIN [None]
  - BREAST SWELLING [None]
  - PAIN [None]
